FAERS Safety Report 4459075-6 (Version None)
Quarter: 2004Q3

REPORT INFORMATION
  Report Type: 
  Country: None (occurrence: None)
  Receive Date: 20040920
  Receipt Date: 20040920
  Transmission Date: 20050211
  Serious: Yes (Life-Threatening)
  Sender: FDA-Public Use
  Company Number: None

PATIENT
  Age: 57 Year
  Sex: Female
  Weight: 70 kg

DRUGS (26)
  1. HEPARIN [Suspect]
     Indication: DEEP VEIN THROMBOSIS
     Dosage: 1400 UNITS/HR IV
     Route: 042
     Dates: start: 20040324, end: 20040503
  2. CALCIUM GLUCEPTATE [Concomitant]
  3. BACITRACIN [Concomitant]
  4. PAROXETINE HCL [Concomitant]
  5. BUPROPION HCL [Concomitant]
  6. DOCUSATE [Concomitant]
  7. BISACODYL [Concomitant]
  8. CHLORAL HYDRATE [Concomitant]
  9. LORAZEPAM [Concomitant]
  10. NYSTATIN OINT [Concomitant]
  11. SILVER SULFADIAZINE [Concomitant]
  12. ACETAMINOPHEN [Concomitant]
  13. ASPIRIN [Concomitant]
  14. LEVOTHYROXINE SODIUM [Concomitant]
  15. HALOPERIDOL [Concomitant]
  16. METOPENEM [Concomitant]
  17. FLUCONOROIC [Concomitant]
  18. SSI [Concomitant]
  19. SUCRALFATE [Concomitant]
  20. LEVOFLOXACIN [Concomitant]
  21. KCL TAB [Concomitant]
  22. FE SULFATE [Concomitant]
  23. METOPROLOL [Concomitant]
  24. MG OXIDE [Concomitant]
  25. CA CARBONATE [Concomitant]
  26. IPRATROPIUM/ALBUTEROL [Concomitant]

REACTIONS (3)
  - ACQUIRED TRACHEO-OESOPHAGEAL FISTULA [None]
  - ACTIVATED PARTIAL THROMBOPLASTIN TIME PROLONGED [None]
  - HAEMORRHAGE [None]
